FAERS Safety Report 7419842-3 (Version None)
Quarter: 2011Q2

REPORT INFORMATION
  Report Type: 
  Country: None (occurrence: None)
  Receive Date: 20110413
  Receipt Date: 20110413
  Transmission Date: 20111010
  Serious: No
  Sender: FDA-Public Use
  Company Number: None

PATIENT
  Sex: Female
  Weight: 78.0187 kg

DRUGS (1)
  1. AMOXICILLIN [Suspect]
     Indication: SINUSITIS
     Dosage: 125 MG ONCE EVERY 12 HOURS 047
     Dates: start: 20110402, end: 20110408

REACTIONS (2)
  - RASH [None]
  - URTICARIA [None]
